FAERS Safety Report 7219667-8 (Version None)
Quarter: 2011Q1

REPORT INFORMATION
  Report Type: 
  Country: None (occurrence: None)
  Receive Date: 20110111
  Receipt Date: 20101230
  Transmission Date: 20110831
  Serious: Yes (Hospitalization)
  Sender: FDA-Public Use
  Company Number: PHHY2010FR89447

PATIENT
  Age: 85 Year
  Sex: Female

DRUGS (7)
  1. LERCAN [Concomitant]
     Dosage: 10 MG, UNK
     Route: 048
  2. RASILEZ [Suspect]
     Indication: HYPERTENSION
     Dosage: 300 MG
     Dates: start: 20100301, end: 20100501
  3. PLAVIX [Concomitant]
     Dosage: 75 MG, UNK
  4. BISOPROLOL [Concomitant]
     Dosage: 5 MG, UNK
  5. OXYBUTYNIN [Concomitant]
  6. FUROSEMIDE [Concomitant]
  7. ACETAMINOPHEN AND TRAMADOL HCL [Concomitant]
     Dosage: UNK

REACTIONS (5)
  - RENAL IMPAIRMENT [None]
  - RENAL TUBULAR NECROSIS [None]
  - ANAEMIA [None]
  - RENAL FAILURE ACUTE [None]
  - HYPERKALAEMIA [None]
